FAERS Safety Report 10810212 (Version 1)
Quarter: 2015Q1

REPORT INFORMATION
  Report Type: Spontaneous
  Country: US (occurrence: None)
  Receive Date: 20150212
  Receipt Date: 20150212
  Transmission Date: 20150721
  Serious: Yes (Other)
  Sender: FDA-Public Use
  Company Number: None

PATIENT
  Age: 13 Year
  Sex: Male
  Weight: 78.93 kg

DRUGS (2)
  1. AMPICILLIN [Suspect]
     Active Substance: AMPICILLIN
     Indication: ACNE
     Dosage: 500 MG, 1 PILL, 2 X DAILY, MOUTH
     Route: 048
     Dates: start: 20141220, end: 20141231
  2. OMEGA 3 SUPPLEMENTS [Concomitant]

REACTIONS (3)
  - Abdominal pain upper [None]
  - Abdominal discomfort [None]
  - Diarrhoea [None]

NARRATIVE: CASE EVENT DATE: 20141220
